FAERS Safety Report 17901096 (Version 1)
Quarter: 2020Q2

REPORT INFORMATION
  Report Type: Spontaneous
  Country: US (occurrence: US)
  Receive Date: 20200616
  Receipt Date: 20200616
  Transmission Date: 20200714
  Serious: No
  Sender: FDA-Public Use
  Company Number: US-PFIZER INC-2020232986

PATIENT
  Age: 58 Year
  Sex: Female

DRUGS (1)
  1. AROMASIN [Suspect]
     Active Substance: EXEMESTANE
     Indication: BREAST CANCER FEMALE
     Dosage: UNK (EVERY OTHER DAY)
     Dates: start: 2020

REACTIONS (3)
  - Neoplasm progression [Unknown]
  - Night sweats [Unknown]
  - Hot flush [Unknown]
